FAERS Safety Report 9312314 (Version 1)
Quarter: 2013Q2

REPORT INFORMATION
  Report Type: Spontaneous
  Country: AT (occurrence: AT)
  Receive Date: 20130528
  Receipt Date: 20130528
  Transmission Date: 20140414
  Serious: Yes (Hospitalization)
  Sender: FDA-Public Use
  Company Number: AT-GALDERMA-AT13001619

PATIENT
  Age: 45 Year
  Sex: Female
  Weight: 74 kg

DRUGS (4)
  1. BENZAKNEN [Suspect]
     Indication: ACNE
     Dosage: 5%
     Route: 061
     Dates: start: 20121220
  2. TRITTICO [Concomitant]
     Indication: PRODUCT USED FOR UNKNOWN INDICATION
  3. TRUXAL [Concomitant]
     Indication: PRODUCT USED FOR UNKNOWN INDICATION
  4. EFECTIN [Concomitant]
     Indication: PRODUCT USED FOR UNKNOWN INDICATION

REACTIONS (2)
  - Oedema [Recovered/Resolved]
  - Dermatitis contact [Recovered/Resolved]
